FAERS Safety Report 9296021 (Version 3)
Quarter: 2014Q1

REPORT INFORMATION
  Report Type: Spontaneous
  Country: HR (occurrence: HR)
  Receive Date: 20130517
  Receipt Date: 20140220
  Transmission Date: 20141002
  Serious: Yes (Hospitalization)
  Sender: FDA-Public Use
  Company Number: HR-JNJFOC-20130314722

PATIENT
  Sex: Female
  Weight: 85 kg

DRUGS (4)
  1. REMICADE [Suspect]
     Indication: PSORIATIC ARTHROPATHY
     Route: 042
     Dates: start: 20120912, end: 201209
  2. REMICADE [Suspect]
     Indication: PSORIATIC ARTHROPATHY
     Route: 042
     Dates: start: 201210, end: 20121003
  3. DICLOFENAC [Concomitant]
     Indication: PSORIATIC ARTHROPATHY
     Route: 065
     Dates: start: 20120523, end: 20121010
  4. TRAMADOL [Concomitant]
     Indication: PSORIATIC ARTHROPATHY
     Route: 065
     Dates: start: 20120523, end: 20121010

REACTIONS (12)
  - Sensation of foreign body [Unknown]
  - Hypertension [Recovering/Resolving]
  - Musculoskeletal pain [Recovered/Resolved]
  - Liver disorder [Not Recovered/Not Resolved]
  - Infertility [Recovering/Resolving]
  - Infusion related reaction [Unknown]
  - Dysphagia [Recovering/Resolving]
  - Vomiting [Recovered/Resolved]
  - Erythema [Recovering/Resolving]
  - Pyrexia [Recovered/Resolved]
  - Drug intolerance [Unknown]
  - Oropharyngeal pain [Recovered/Resolved]
